FAERS Safety Report 7796196-4 (Version None)
Quarter: 2011Q4

REPORT INFORMATION
  Report Type: 
  Country: None (occurrence: None)
  Receive Date: 20111004
  Receipt Date: 20110929
  Transmission Date: 20120403
  Serious: Yes (Hospitalization)
  Sender: FDA-Public Use
  Company Number: JP-ABBOTT-11P-087-0856742-00

PATIENT
  Age: 80 Year
  Sex: Female

DRUGS (2)
  1. ADALIMUMAB [Suspect]
     Indication: RHEUMATOID ARTHRITIS
  2. METHOTREXATE [Concomitant]
     Indication: RHEUMATOID ARTHRITIS

REACTIONS (3)
  - TUBERCULOUS PLEURISY [None]
  - TUBERCULOSIS [None]
  - INFECTIOUS PERITONITIS [None]
